FAERS Safety Report 10125765 (Version 1)
Quarter: 2014Q2

REPORT INFORMATION
  Report Type: Spontaneous
  Country: CA (occurrence: CA)
  Receive Date: 20140425
  Receipt Date: 20140425
  Transmission Date: 20141212
  Serious: Yes (Other)
  Sender: FDA-Public Use
  Company Number: CA-ACTAVIS-2014-08102

PATIENT
  Sex: Male

DRUGS (6)
  1. OLANZAPINE (UNKNOWN) [Suspect]
     Indication: SCHIZOPHRENIA, PARANOID TYPE
     Dosage: 10 MG, DAILY
     Route: 065
     Dates: start: 2004, end: 2004
  2. HALOPERIDOL (UNKNOWN) [Suspect]
     Indication: SCHIZOPHRENIA, PARANOID TYPE
     Dosage: 5 MG, DAILY
     Route: 065
     Dates: start: 2004, end: 2006
  3. FLUPENTHIXOL [Suspect]
     Indication: SCHIZOPHRENIA, PARANOID TYPE
     Dosage: 40 MG, 1/TWO WEEKS
     Route: 030
  4. FLUPHENAZINE [Suspect]
     Indication: SCHIZOPHRENIA, PARANOID TYPE
     Dosage: 50 MG, 1/TWO WEEKS
     Route: 030
     Dates: end: 2004
  5. FLUPHENAZINE [Suspect]
     Dosage: 20-60 MG, EVERY 2 WEEKS
     Route: 065
     Dates: start: 2006, end: 2012
  6. PALIPERIDONE [Suspect]
     Indication: SCHIZOPHRENIA, PARANOID TYPE
     Dosage: 156 MG, ONCE A MONTH
     Route: 065

REACTIONS (1)
  - Neutropenia [Unknown]
